FAERS Safety Report 6194863-X (Version None)
Quarter: 2009Q2

REPORT INFORMATION
  Report Type: 
  Country: None (occurrence: None)
  Receive Date: 20090519
  Receipt Date: 20081013
  Transmission Date: 20091009
  Serious: No
  Sender: FDA-Public Use
  Company Number: US-TYCO HEALTHCARE/MALLINCKRODT-T200801657

PATIENT

DRUGS (6)
  1. METHADONE [Suspect]
     Indication: PAIN
     Dosage: 40 MG (4 TABS), BID
     Dates: start: 20070101
  2. OXYCODONE HCL [Concomitant]
     Indication: PAIN
     Dosage: 45 MG (1.5 TABS), QID
     Route: 048
  3. VALIUM [Concomitant]
     Indication: INSOMNIA
     Dosage: 10 MG, QD
     Route: 048
  4. AMBIEN [Concomitant]
     Indication: INSOMNIA
     Dosage: 10 MG, QD
     Route: 048
  5. TYLENOL (CAPLET) [Concomitant]
     Indication: PAIN
     Dosage: UNK, PRN
     Route: 048
  6. METHADONE [Concomitant]
     Dosage: UNK, UNK
     Route: 048
     Dates: start: 20070101

REACTIONS (1)
  - DRUG SCREEN NEGATIVE [None]
